FAERS Safety Report 7369333-3 (Version None)
Quarter: 2011Q1

REPORT INFORMATION
  Report Type: 
  Country: None (occurrence: None)
  Receive Date: 20110323
  Receipt Date: 20110314
  Transmission Date: 20110831
  Serious: Yes (Other)
  Sender: FDA-Public Use
  Company Number: B0707434A

PATIENT
  Age: 69 Year
  Sex: Female

DRUGS (10)
  1. FUROSEMIDE [Concomitant]
  2. POTASSIUM CHLORIDE [Concomitant]
  3. ALBUTEROL SULFATE AUTOHALER [Suspect]
     Dosage: .09MG UNKNOWN
     Route: 055
     Dates: start: 20110101, end: 20110101
  4. LEVOTHYROXINE SODIUM [Concomitant]
  5. ESTROGEN CONJUGATED [Concomitant]
  6. WARFARIN SODIUM [Concomitant]
  7. OXYBUTYNIN [Concomitant]
  8. DICYCLOVERINE HYDROCHLORIDE [Concomitant]
  9. NORTRIPTYLINE [Concomitant]
  10. HYDROXYZINE [Concomitant]

REACTIONS (4)
  - PHARYNGEAL OEDEMA [None]
  - OROPHARYNGEAL SPASM [None]
  - DYSPNOEA [None]
  - ANXIETY [None]
